FAERS Safety Report 19126266 (Version 2)
Quarter: 2021Q2

REPORT INFORMATION
  Report Type: Spontaneous
  Country: CA (occurrence: CA)
  Receive Date: 20210412
  Receipt Date: 20210428
  Transmission Date: 20210717
  Serious: Yes (Other)
  Sender: FDA-Public Use
  Company Number: CA-PFIZER INC-2020062861

PATIENT
  Age: 50 Year
  Sex: Female

DRUGS (8)
  1. MELOXICAM. [Concomitant]
     Active Substance: MELOXICAM
     Indication: ANALGESIC THERAPY
     Dosage: 7.5 MG, 2X/DAY AS NEEDED
     Route: 065
     Dates: start: 2020
  2. PREDNISONE. [Concomitant]
     Active Substance: PREDNISONE
     Dosage: 5 MG, WEEKLY
  3. TYLENOL [Concomitant]
     Active Substance: ACETAMINOPHEN
     Indication: MIGRAINE
     Dosage: UNK, AS NEEDED
     Route: 065
  4. VIMOVO [Concomitant]
     Active Substance: ESOMEPRAZOLE MAGNESIUM\NAPROXEN
     Indication: ARTHRALGIA
     Dosage: 500 MG, OD OR BID
     Route: 065
     Dates: start: 2020
  5. PREDNISONE. [Concomitant]
     Active Substance: PREDNISONE
     Dosage: 15 MG, DAILY
     Route: 048
     Dates: start: 201907, end: 2020
  6. PREDNISONE. [Concomitant]
     Active Substance: PREDNISONE
     Dosage: 20 MG, DAILY
  7. XELJANZ XR [Suspect]
     Active Substance: TOFACITINIB CITRATE
     Indication: RHEUMATOID ARTHRITIS
     Dosage: 11 MG, 1X/DAY
     Route: 048
     Dates: start: 20200127, end: 202103
  8. PREDNISONE. [Concomitant]
     Active Substance: PREDNISONE
     Dosage: 2.5 MG, WEEKLY

REACTIONS (28)
  - Red blood cell sedimentation rate increased [Recovering/Resolving]
  - Fatigue [Unknown]
  - Palpitations [Unknown]
  - Rash [Unknown]
  - Asthenia [Not Recovered/Not Resolved]
  - Immunosuppression [Unknown]
  - Dysuria [Unknown]
  - Chest discomfort [Unknown]
  - Chills [Unknown]
  - Musculoskeletal stiffness [Recovering/Resolving]
  - Depressed mood [Unknown]
  - Abdominal discomfort [Unknown]
  - Osteoarthritis [Unknown]
  - Meniscus injury [Recovering/Resolving]
  - Hepatic steatosis [Unknown]
  - Migraine [Unknown]
  - Hepatic function abnormal [Recovering/Resolving]
  - Arthralgia [Unknown]
  - Back pain [Not Recovered/Not Resolved]
  - Rheumatoid arthritis [Unknown]
  - Drug ineffective [Unknown]
  - Hepatic enzyme increased [Unknown]
  - Renal impairment [Recovering/Resolving]
  - Headache [Not Recovered/Not Resolved]
  - Skin exfoliation [Recovering/Resolving]
  - Joint injury [Unknown]
  - Weight increased [Unknown]
  - Inflammatory marker increased [Unknown]

NARRATIVE: CASE EVENT DATE: 2020
